FAERS Safety Report 13879461 (Version 1)
Quarter: 2017Q3

REPORT INFORMATION
  Report Type: Spontaneous
  Country: US (occurrence: US)
  Receive Date: 20170817
  Receipt Date: 20170817
  Transmission Date: 20171127
  Serious: No
  Sender: FDA-Public Use
  Company Number: US-ENDO PHARMACEUTICALS INC-2017-000717

PATIENT
  Age: 31 Year
  Sex: Female
  Weight: 165.53 kg

DRUGS (1)
  1. SUMAVEL DOSEPRO [Suspect]
     Active Substance: SUMATRIPTAN SUCCINATE
     Indication: MIGRAINE
     Dosage: 4 MG, UNK INJECTED INTO ABDOMEN
     Route: 065
     Dates: start: 2015

REACTIONS (4)
  - Injection site pain [Unknown]
  - Device malfunction [Recovered/Resolved]
  - Injection site bruising [Unknown]
  - Drug dose omission [Not Recovered/Not Resolved]

NARRATIVE: CASE EVENT DATE: 20170208
